FAERS Safety Report 9664402 (Version 1)
Quarter: 2013Q4

REPORT INFORMATION
  Report Type: Spontaneous
  Country: US (occurrence: None)
  Receive Date: 20131030
  Receipt Date: 20131030
  Transmission Date: 20140711
  Serious: Yes (Hospitalization)
  Sender: FDA-Public Use
  Company Number: None

PATIENT
  Age: 48 Year
  Sex: Male

DRUGS (1)
  1. CETUXIMAB [Suspect]
     Indication: PLASMA CELL MYELOMA
     Dates: start: 20110718

REACTIONS (4)
  - Nausea [None]
  - Tremor [None]
  - Dyspnoea [None]
  - Blood pressure decreased [None]
